FAERS Safety Report 6137752-9 (Version None)
Quarter: 2009Q1

REPORT INFORMATION
  Report Type: 
  Country: None (occurrence: None)
  Receive Date: 20090327
  Receipt Date: 20090312
  Transmission Date: 20090719
  Serious: Yes (Other)
  Sender: FDA-Public Use
  Company Number: 2009S1004557

PATIENT
  Age: 53 Year
  Sex: Male

DRUGS (14)
  1. FENTANYL TRANSDERMAL SYSTEM [Suspect]
     Indication: PAIN
     Dosage: 100 UG;EVERY HOUR; TRANSDERMAL
     Route: 062
  2. AMBIEN [Concomitant]
  3. CYMBALTA [Concomitant]
  4. TESTOSTERONE [Concomitant]
  5. XANAX [Concomitant]
  6. HYDROCHLOROTHIAZIDE [Concomitant]
  7. OXYCODONE HCL [Concomitant]
  8. ATENOLOL [Concomitant]
  9. LISINOPRIL [Concomitant]
  10. PRAVASTATIN [Concomitant]
  11. NEURONTIN [Concomitant]
  12. ADVAIR HFA [Concomitant]
  13. LEVOTHYROXINE SODIUM [Concomitant]
  14. FENTANYL [Concomitant]

REACTIONS (2)
  - DRUG WITHDRAWAL SYNDROME [None]
  - PRODUCT QUALITY ISSUE [None]
